FAERS Safety Report 18059576 (Version 1)
Quarter: 2020Q3

REPORT INFORMATION
  Report Type: Spontaneous
  Country: HR (occurrence: HR)
  Receive Date: 20200723
  Receipt Date: 20200723
  Transmission Date: 20201103
  Serious: Yes (Other)
  Sender: FDA-Public Use
  Company Number: HR-PFIZER INC-2020277983

PATIENT
  Age: 77 Year
  Sex: Male

DRUGS (15)
  1. LEVOTHYROXINE. [Interacting]
     Active Substance: LEVOTHYROXINE
     Indication: HYPOTHYROIDISM
     Dosage: 50 UG (WEEKDAYS)
  2. LEVOTHYROXINE. [Interacting]
     Active Substance: LEVOTHYROXINE
     Dosage: 75 UG (ON SATURDAY AND SUNDAY)
  3. CODEINE PHOSPHATE [Interacting]
     Active Substance: CODEINE PHOSPHATE
     Dosage: 30 MG, 3X/DAY
  4. CARVEDILOL. [Interacting]
     Active Substance: CARVEDILOL
     Indication: ATRIAL FIBRILLATION
  5. CARVEDILOL. [Interacting]
     Active Substance: CARVEDILOL
     Indication: HYPERTENSION
     Dosage: 6.25 MG, 1X/DAY
  6. VILDAGLIPTIN [Interacting]
     Active Substance: VILDAGLIPTIN
     Indication: TYPE 2 DIABETES MELLITUS
     Dosage: 50 MG, 2X/DAY
  7. ATORVASTATIN CALCIUM. [Suspect]
     Active Substance: ATORVASTATIN CALCIUM
     Indication: HYPERTENSION
     Dosage: 20 MG,1X/DAY
  8. DABIGATRAN [Interacting]
     Active Substance: DABIGATRAN
     Indication: ATRIAL FIBRILLATION
     Dosage: 110 MG, 2X/DAY
  9. VALSARTAN. [Interacting]
     Active Substance: VALSARTAN
     Indication: HYPERTENSION
     Dosage: 80 MG, 1X/DAY
  10. METFORMIN [Interacting]
     Active Substance: METFORMIN HYDROCHLORIDE
     Indication: TYPE 2 DIABETES MELLITUS
     Dosage: 1000 MG, 2X/DAY
  11. LACIDIPINE [Interacting]
     Active Substance: LACIDIPINE
     Indication: ATRIAL FIBRILLATION
  12. ATORVASTATIN CALCIUM. [Interacting]
     Active Substance: ATORVASTATIN CALCIUM
     Indication: ATRIAL FIBRILLATION
  13. VALSARTAN. [Interacting]
     Active Substance: VALSARTAN
     Indication: ATRIAL FIBRILLATION
  14. PAZOPANIB [Interacting]
     Active Substance: PAZOPANIB
     Indication: METASTATIC RENAL CELL CARCINOMA
     Dosage: 800 MG, 1X/DAY (AT LEAST ONE HOUR BEFORE HIS MEAL)
  15. LACIDIPINE [Interacting]
     Active Substance: LACIDIPINE
     Indication: HYPERTENSION
     Dosage: 4 MG, 1X/DAY

REACTIONS (1)
  - Drug interaction [Unknown]
